FAERS Safety Report 11353363 (Version 1)
Quarter: 2015Q3

REPORT INFORMATION
  Report Type: Spontaneous
  Country: US (occurrence: US)
  Receive Date: 20150807
  Receipt Date: 20150807
  Transmission Date: 20151125
  Serious: No
  Sender: FDA-Public Use
  Company Number: US-JNJFOC-20141018202

PATIENT
  Age: 49 Year
  Sex: Male
  Weight: 99.79 kg

DRUGS (3)
  1. ROGAINE EXTRA STRENGTH FOAM SCENTED [Suspect]
     Active Substance: MINOXIDIL
     Route: 061
  2. ROGAINE EXTRA STRENGTH FOAM SCENTED [Suspect]
     Active Substance: MINOXIDIL
     Indication: HAIR GROWTH ABNORMAL
     Dosage: HALF A CAPFUL
     Route: 061
  3. ANTI HYPERTENSIVE MEDICATIONS [Concomitant]
     Indication: HYPERTENSION
     Route: 065

REACTIONS (1)
  - Skin ulcer [Recovered/Resolved]
